FAERS Safety Report 7531691-4 (Version None)
Quarter: 2011Q2

REPORT INFORMATION
  Report Type: 
  Country: None (occurrence: None)
  Receive Date: 20110608
  Receipt Date: 20110601
  Transmission Date: 20111010
  Serious: Yes (Hospitalization, Other)
  Sender: FDA-Public Use
  Company Number: US-PFIZER INC-2011119451

PATIENT
  Sex: Male
  Weight: 76.19 kg

DRUGS (3)
  1. AMBIEN [Suspect]
     Indication: INSOMNIA
     Dosage: UNK
  2. ZOLOFT [Suspect]
     Indication: BIPOLAR DISORDER
     Dosage: 200 MG, DAILY
     Dates: start: 20050101
  3. HYDROXYZINE HCL [Suspect]
     Indication: ANXIETY
     Dosage: 50 MG, UNK
     Route: 048
     Dates: start: 20100101

REACTIONS (6)
  - PERIORBITAL HAEMATOMA [None]
  - LACERATION [None]
  - BLOOD POTASSIUM DECREASED [None]
  - LOSS OF CONSCIOUSNESS [None]
  - HYPOTONIA [None]
  - PERIPHERAL NERVE INJURY [None]
